FAERS Safety Report 6886750-6 (Version None)
Quarter: 2010Q3

REPORT INFORMATION
  Report Type: 
  Country: None (occurrence: None)
  Receive Date: 20100727
  Receipt Date: 20100716
  Transmission Date: 20110219
  Serious: Yes (Hospitalization)
  Sender: FDA-Public Use
  Company Number: FR-ROCHE-716198

PATIENT
  Sex: Male
  Weight: 63 kg

DRUGS (4)
  1. BEVACIZUMAB [Suspect]
     Indication: NON-SMALL CELL LUNG CANCER
     Dosage: FORM: INFUSION, LAST DOSE PRIOR TO SAE: 10 MARCH 2010.
     Route: 042
     Dates: start: 20100127
  2. CISPLATIN [Suspect]
     Indication: NON-SMALL CELL LUNG CANCER
     Dosage: FORM: INFUSION, LAST DOSE PRIOR TO SAE: 10 MARCH 2010.
     Route: 042
     Dates: start: 20100126
  3. PEMETREXED [Suspect]
     Indication: NON-SMALL CELL LUNG CANCER
     Dosage: FORM: INFUSION, LAST DOSE PRIOR TO SAE: 10 MARCH 2010.
     Route: 042
     Dates: start: 20100127
  4. SKENAN [Concomitant]
     Indication: PAIN
     Dosage: INDICATION: NSCLC PAIN.

REACTIONS (1)
  - VIITH NERVE PARALYSIS [None]
